FAERS Safety Report 13936918 (Version 4)
Quarter: 2017Q4

REPORT INFORMATION
  Report Type: Spontaneous
  Country: US (occurrence: US)
  Receive Date: 20170905
  Receipt Date: 20171107
  Transmission Date: 20180320
  Serious: No
  Sender: FDA-Public Use
  Company Number: US-PFIZER INC-2017380281

PATIENT
  Age: 63 Year
  Sex: Female
  Weight: 95.71 kg

DRUGS (5)
  1. LOSARTAN. [Concomitant]
     Active Substance: LOSARTAN
     Indication: HYPERTENSION
     Dosage: UNK
  2. BENADRYL [Concomitant]
     Active Substance: DIPHENHYDRAMINE HYDROCHLORIDE
     Indication: PRURITUS
     Dosage: 25MG UNKNOWN FORMULATION TWICE A DAY BY MOUTH
     Route: 048
  3. PFIZERPEN [Suspect]
     Active Substance: PENICILLIN G POTASSIUM
     Indication: SKIN TEST
  4. OMEPRAZOLE. [Concomitant]
     Active Substance: OMEPRAZOLE
     Indication: GASTROOESOPHAGEAL REFLUX DISEASE
     Dosage: 20MG CAPSULE ONCE DAILY
     Route: 048
  5. PFIZERPEN [Suspect]
     Active Substance: PENICILLIN G POTASSIUM
     Indication: ALLERGY TEST
     Dosage: UNK (20 MILLION UNITS PER VIAL)
     Route: 023
     Dates: start: 20170830, end: 20170830

REACTIONS (7)
  - Injection site reaction [Recovering/Resolving]
  - Skin discolouration [Recovered/Resolved]
  - Skin irritation [Recovered/Resolved]
  - Product physical issue [Unknown]
  - Injection site pain [Recovering/Resolving]
  - Poor quality drug administered [Unknown]
  - Injection site erythema [Recovering/Resolving]

NARRATIVE: CASE EVENT DATE: 20170830
